FAERS Safety Report 10073523 (Version 1)
Quarter: 2014Q2

REPORT INFORMATION
  Report Type: Report from Study
  Country: US (occurrence: US)
  Receive Date: 20140411
  Receipt Date: 20140411
  Transmission Date: 20141212
  Serious: Yes (Hospitalization)
  Sender: FDA-Public Use
  Company Number: US-ABBVIE-14P-163-1220785-00

PATIENT
  Age: 27 Year
  Sex: Female

DRUGS (3)
  1. HUMIRA [Suspect]
     Indication: COLITIS ULCERATIVE
     Dates: start: 20140315
  2. 6 MP [Concomitant]
     Indication: COLITIS
  3. PREDNISONE [Concomitant]
     Indication: COLITIS

REACTIONS (3)
  - Oropharyngeal pain [Recovering/Resolving]
  - White blood cell count increased [Recovering/Resolving]
  - Pyrexia [Recovering/Resolving]
